FAERS Safety Report 18186458 (Version 1)
Quarter: 2020Q3

REPORT INFORMATION
  Report Type: Spontaneous
  Country: US (occurrence: US)
  Receive Date: 20200823
  Receipt Date: 20200823
  Transmission Date: 20201103
  Serious: Yes (Other)
  Sender: FDA-Public Use
  Company Number: None

PATIENT
  Age: 64 Year
  Sex: Female
  Weight: 68.85 kg

DRUGS (1)
  1. ESCITALOPRAM [Suspect]
     Active Substance: ESCITALOPRAM OXALATE
     Indication: DEPRESSION
     Route: 048
     Dates: start: 20200721, end: 20200823

REACTIONS (8)
  - Mood altered [None]
  - Asthenia [None]
  - Crying [None]
  - Headache [None]
  - Dizziness [None]
  - Product substitution issue [None]
  - Product measured potency issue [None]
  - Withdrawal syndrome [None]

NARRATIVE: CASE EVENT DATE: 20200817
